FAERS Safety Report 17427212 (Version 1)
Quarter: 2020Q1

REPORT INFORMATION
  Report Type: Spontaneous
  Country: US (occurrence: US)
  Receive Date: 20200218
  Receipt Date: 20200218
  Transmission Date: 20200409
  Serious: Yes (Hospitalization)
  Sender: FDA-Public Use
  Company Number: US-ABBVIE-20K-163-3275674-00

PATIENT
  Sex: Female

DRUGS (2)
  1. MAVYRET [Suspect]
     Active Substance: GLECAPREVIR\PIBRENTASVIR
     Dosage: MAVYRET TAB 100 MILLIGRAM- 40 MILLIGRAM
     Route: 048
     Dates: start: 20190827
  2. MAVYRET [Suspect]
     Active Substance: GLECAPREVIR\PIBRENTASVIR
     Indication: PRODUCT USED FOR UNKNOWN INDICATION
     Dosage: MAVYRET TAB 100 MILLIGRAM- 40 MILLIGRAM
     Route: 048
     Dates: start: 201907, end: 20190823

REACTIONS (3)
  - Abdominal pain [Unknown]
  - Frequent bowel movements [Unknown]
  - Intestinal obstruction [Unknown]

NARRATIVE: CASE EVENT DATE: 201908
